FAERS Safety Report 4944620-4 (Version None)
Quarter: 2006Q1

REPORT INFORMATION
  Report Type: 
  Country: None (occurrence: None)
  Receive Date: 20060315
  Receipt Date: 20060307
  Transmission Date: 20060701
  Serious: Yes (Other)
  Sender: FDA-Public Use
  Company Number: PHBS2006SE03568

PATIENT
  Age: 80 Year
  Sex: Female

DRUGS (8)
  1. ESIDRIX [Suspect]
     Indication: ESSENTIAL HYPERTENSION
     Dosage: 12.5 MG/DAY
     Route: 048
     Dates: start: 20051124, end: 20051202
  2. ATACAND [Suspect]
     Indication: ESSENTIAL HYPERTENSION
     Dosage: 1 DFD/DAY
     Route: 048
     Dates: start: 20051128, end: 20051202
  3. METOPROLOL SUCCINATE [Concomitant]
     Dosage: 50 MG, UNK
  4. ACETAMINOPHEN [Concomitant]
     Dosage: 500 MG, UNK
     Route: 048
  5. NORVASC [Concomitant]
     Dosage: 10 MG, UNK
  6. IMOVANE [Concomitant]
     Dosage: 7.5 MG, UNK
  7. ACETYLCYSTEINE [Concomitant]
     Dosage: 200 MG, UNK
  8. KALCIPOS-D [Concomitant]

REACTIONS (3)
  - BLOOD CREATININE INCREASED [None]
  - RENAL FAILURE [None]
  - URINE OUTPUT DECREASED [None]
